FAERS Safety Report 16075101 (Version 3)
Quarter: 2019Q2

REPORT INFORMATION
  Report Type: Spontaneous
  Country: DK (occurrence: DK)
  Receive Date: 20190315
  Receipt Date: 20190415
  Transmission Date: 20190711
  Serious: No
  Sender: FDA-Public Use
  Company Number: DK-009507513-1903DNK002589

PATIENT
  Age: 30 Year
  Sex: Male

DRUGS (5)
  1. TEMOZOLOMIDE. [Suspect]
     Active Substance: TEMOZOLOMIDE
     Indication: GLIOBLASTOMA
     Dosage: 350 MGX1 FOR 5 DAYS, 5 SERIES IN TOTAL
     Route: 048
     Dates: start: 20151203
  2. TEMOZOLOMIDE. [Suspect]
     Active Substance: TEMOZOLOMIDE
     Dosage: 350 MGX1 FOR 5 DAYS, 5 SERIES IN TOTAL
     Route: 048
  3. TEMOZOLOMIDE. [Suspect]
     Active Substance: TEMOZOLOMIDE
     Dosage: 350 MGX1 FOR 5 DAYS, 5 SERIES IN TOTAL
     Route: 048
     Dates: start: 20160329
  4. TEMOZOLOMIDE. [Suspect]
     Active Substance: TEMOZOLOMIDE
     Dosage: 350 MGX1 FOR 5 DAYS, 5 SERIES IN TOTAL
     Route: 048
  5. TEMOZOLOMIDE. [Suspect]
     Active Substance: TEMOZOLOMIDE
     Dosage: 350 MGX1 FOR 5 DAYS, 5 SERIES IN TOTAL
     Route: 048

REACTIONS (1)
  - Off label use [Unknown]

NARRATIVE: CASE EVENT DATE: 20151203
